FAERS Safety Report 6099994-0 (Version None)
Quarter: 2009Q1

REPORT INFORMATION
  Report Type: 
  Country: None (occurrence: None)
  Receive Date: 20090303
  Receipt Date: 20090303
  Transmission Date: 20090719
  Serious: Yes (Hospitalization)
  Sender: FDA-Public Use
  Company Number: A0770202A

PATIENT
  Age: 64 Year
  Sex: Female

DRUGS (9)
  1. REQUIP [Suspect]
     Indication: RESTLESS LEGS SYNDROME
     Dosage: 4MG THREE TIMES PER DAY
     Route: 048
     Dates: end: 20090101
  2. MORPHINE [Concomitant]
  3. LORA TAB [Concomitant]
     Dosage: 6TAB PER DAY
     Route: 048
  4. AMITRIPTYLINE [Concomitant]
  5. SIMVASTATIN [Concomitant]
  6. FLUDROCORTISONE [Concomitant]
  7. METFORMIN HCL [Concomitant]
  8. ANTIDEPRESSANT [Concomitant]
  9. TRANQUILIZER [Concomitant]

REACTIONS (5)
  - DIZZINESS [None]
  - DYSSTASIA [None]
  - LOSS OF CONSCIOUSNESS [None]
  - RETCHING [None]
  - VOMITING [None]
